FAERS Safety Report 6770412-X (Version None)
Quarter: 2010Q2

REPORT INFORMATION
  Report Type: 
  Country: None (occurrence: None)
  Receive Date: 20100615
  Receipt Date: 20100603
  Transmission Date: 20101027
  Serious: Yes (Other)
  Sender: FDA-Public Use
  Company Number: US-PFIZER INC-2010070548

PATIENT
  Sex: Male
  Weight: 70.295 kg

DRUGS (6)
  1. SILDENAFIL CITRATE [Suspect]
     Indication: PULMONARY HYPERTENSION
     Dosage: 100 MG, UNK
  2. REVATIO [Suspect]
     Indication: PULMONARY HYPERTENSION
     Dosage: 20 MG, 3X/DAY
     Dates: start: 20100513
  3. SOTALOL [Concomitant]
     Dosage: UNK
  4. DIGOXIN [Concomitant]
     Dosage: UNK
  5. WARFARIN [Concomitant]
     Dosage: UNK
  6. LASIX [Concomitant]
     Dosage: UNK

REACTIONS (3)
  - BLOOD DISORDER [None]
  - DRUG ADMINISTRATION ERROR [None]
  - ERECTILE DYSFUNCTION [None]
